FAERS Safety Report 12613724 (Version 2)
Quarter: 2016Q3

REPORT INFORMATION
  Report Type: Other
  Country: US (occurrence: US)
  Receive Date: 20160802
  Receipt Date: 20160822
  Transmission Date: 20161109
  Serious: Yes (Other)
  Sender: FDA-Public Use
  Company Number: US-DEXPHARM-20161598

PATIENT
  Age: 37 Year
  Sex: Female

DRUGS (1)
  1. HIBICLENS [Suspect]
     Active Substance: CHLORHEXIDINE GLUCONATE
     Indication: PREOPERATIVE CARE

REACTIONS (7)
  - Eye irritation [Unknown]
  - Corneal oedema [Recovered/Resolved]
  - Visual acuity reduced [Recovering/Resolving]
  - Conjunctivitis [Unknown]
  - Accidental exposure to product [Unknown]
  - Keratitis [Unknown]
  - Photosensitivity reaction [Recovered/Resolved]
